FAERS Safety Report 20937659 (Version 1)
Quarter: 2022Q2

REPORT INFORMATION
  Report Type: Report from Study
  Country: GB (occurrence: GB)
  Receive Date: 20220609
  Receipt Date: 20220609
  Transmission Date: 20220721
  Serious: Yes (Other)
  Sender: FDA-Public Use
  Company Number: GB-TEVA-2022-GB-2037725

PATIENT
  Age: 74 Year
  Sex: Male

DRUGS (1)
  1. OCTREOTIDE [Suspect]
     Active Substance: OCTREOTIDE
     Route: 065

REACTIONS (5)
  - Prostate cancer [Unknown]
  - Dyspnoea [Not Recovered/Not Resolved]
  - Hypertonic bladder [Unknown]
  - Fatigue [Not Recovered/Not Resolved]
  - Heart rate decreased [Unknown]

NARRATIVE: CASE EVENT DATE: 20220501
